FAERS Safety Report 6101021-3 (Version None)
Quarter: 2009Q1

REPORT INFORMATION
  Report Type: 
  Country: None (occurrence: None)
  Receive Date: 20090304
  Receipt Date: 20090224
  Transmission Date: 20090719
  Serious: Yes (Hospitalization)
  Sender: FDA-Public Use
  Company Number: US-WYE-H07339208

PATIENT
  Age: 42 Year
  Sex: Female
  Weight: 69.46 kg

DRUGS (6)
  1. PRISTIQ [Suspect]
     Dates: end: 20081130
  2. ZANAFLEX [Concomitant]
  3. LYRICA [Concomitant]
  4. TRILEPTAL [Concomitant]
     Dosage: 300 MG EVEY 8 HOURS
  5. VICODIN [Concomitant]
     Dosage: UNSPECIFIED DOSE BID
  6. VALIUM [Concomitant]

REACTIONS (3)
  - CHEST PAIN [None]
  - HEADACHE [None]
  - LABILE HYPERTENSION [None]
